FAERS Safety Report 19588504 (Version 5)
Quarter: 2021Q3

REPORT INFORMATION
  Report Type: Report from Study
  Country: NL (occurrence: NL)
  Receive Date: 20210721
  Receipt Date: 20210916
  Transmission Date: 20211014
  Serious: Yes (Hospitalization)
  Sender: FDA-Public Use
  Company Number: NVSC2021NL163841

PATIENT
  Age: 84 Year
  Sex: Female

DRUGS (4)
  1. DECITABINE. [Suspect]
     Active Substance: DECITABINE
     Indication: ACUTE MYELOID LEUKAEMIA
     Dosage: 34 MG
     Route: 042
     Dates: start: 20210607, end: 20210616
  2. DECITABINE. [Suspect]
     Active Substance: DECITABINE
     Indication: MYELODYSPLASTIC SYNDROME
  3. MIDOSTAURIN [Suspect]
     Active Substance: MIDOSTAURIN
     Indication: ACUTE MYELOID LEUKAEMIA
     Dosage: 100 MG
     Route: 048
     Dates: start: 20210617, end: 20210708
  4. MIDOSTAURIN [Suspect]
     Active Substance: MIDOSTAURIN
     Indication: MYELODYSPLASTIC SYNDROME

REACTIONS (1)
  - Pneumonia [Recovered/Resolved]

NARRATIVE: CASE EVENT DATE: 20210714
